FAERS Safety Report 12304584 (Version 1)
Quarter: 2016Q2

REPORT INFORMATION
  Report Type: Report from Study
  Country: BR (occurrence: BR)
  Receive Date: 20160426
  Receipt Date: 20160426
  Transmission Date: 20160815
  Serious: Yes (Hospitalization)
  Sender: FDA-Public Use
  Company Number: PHHY2015BR086111

PATIENT
  Sex: Female
  Weight: 82 kg

DRUGS (3)
  1. CABERGOLINE. [Concomitant]
     Active Substance: CABERGOLINE
     Indication: PRODUCT USED FOR UNKNOWN INDICATION
     Route: 065
  2. SANDOSTATIN LAR DEPOT [Suspect]
     Active Substance: OCTREOTIDE ACETATE
     Indication: ACROMEGALY
     Dosage: 40 MG, QMO
     Route: 030
     Dates: start: 2012
  3. PREDNISONE. [Concomitant]
     Active Substance: PREDNISONE
     Indication: PRODUCT USED FOR UNKNOWN INDICATION
     Dosage: UNK
     Route: 065

REACTIONS (9)
  - Application site mass [Not Recovered/Not Resolved]
  - Inappropriate schedule of drug administration [Unknown]
  - Dengue fever [Unknown]
  - Weight fluctuation [Unknown]
  - Weight decreased [Unknown]
  - Hypotension [Unknown]
  - Blood glucose abnormal [Unknown]
  - Anaemia [Unknown]
  - Pyrexia [Recovered/Resolved]
